FAERS Safety Report 4417644-3 (Version None)
Quarter: 2004Q2

REPORT INFORMATION
  Report Type: 
  Country: None (occurrence: None)
  Receive Date: 20040625
  Receipt Date: 20040525
  Transmission Date: 20050107
  Serious: Yes (Hospitalization)
  Sender: FDA-Public Use
  Company Number: 206775

PATIENT
  Sex: Male

DRUGS (1)
  1. AVASTIN [Suspect]
     Indication: COLORECTAL CANCER METASTATIC
     Dosage: 325 MG, UNK; INTRAVENOUS
     Route: 042

REACTIONS (4)
  - BACK PAIN [None]
  - CHILLS [None]
  - HYPOTENSION [None]
  - PYREXIA [None]
